FAERS Safety Report 24279086 (Version 3)
Quarter: 2024Q4

REPORT INFORMATION
  Report Type: Spontaneous
  Country: US (occurrence: US)
  Receive Date: 20240903
  Receipt Date: 20241125
  Transmission Date: 20250115
  Serious: No
  Sender: SUNOVION
  Company Number: US-SUMITOMO PHARMA SWITZERLAND GMBH-2024SPA002157

PATIENT

DRUGS (2)
  1. MYFEMBREE [Suspect]
     Active Substance: ESTRADIOL HEMIHYDRATE\NORETHINDRONE ACETATE\RELUGOLIX
     Indication: Uterine haemorrhage
     Dosage: 1 DF, QD
     Route: 048
     Dates: start: 202407, end: 202408
  2. LEVONORGESTREL [Concomitant]
     Active Substance: LEVONORGESTREL
     Dosage: UNK
     Route: 015
     Dates: start: 2019

REACTIONS (2)
  - Iron deficiency anaemia [Unknown]
  - Heavy menstrual bleeding [Recovered/Resolved with Sequelae]

NARRATIVE: CASE EVENT DATE: 20240701
